FAERS Safety Report 19718889 (Version 1)
Quarter: 2021Q3

REPORT INFORMATION
  Report Type: Report from Study
  Country: DE (occurrence: DE)
  Receive Date: 20210818
  Receipt Date: 20210818
  Transmission Date: 20211014
  Serious: Yes (Other)
  Sender: FDA-Public Use
  Company Number: DE-AMGEN-DEUNI2020171307

PATIENT
  Age: 60 Year
  Sex: Male
  Weight: 64 kg

DRUGS (43)
  1. FLUOROURACIL. [Suspect]
     Active Substance: FLUOROURACIL
     Dosage: 4440 MILLIGRAM
     Route: 042
     Dates: start: 20200803
  2. PANITUMUMAB [Suspect]
     Active Substance: PANITUMUMAB
     Dosage: 385 MILLIGRAM
     Route: 042
     Dates: start: 20200608
  3. PANITUMUMAB [Suspect]
     Active Substance: PANITUMUMAB
     Dosage: 425 MILLIGRAM
     Route: 042
     Dates: start: 20200706
  4. PANITUMUMAB [Suspect]
     Active Substance: PANITUMUMAB
     Dosage: 350 MILLIGRAM
     Route: 042
     Dates: start: 20210128
  5. FOLINIC ACID [Suspect]
     Active Substance: LEUCOVORIN
     Dosage: 700 MILLIGRAM
     Route: 065
     Dates: start: 20201012
  6. FLUOROURACIL. [Suspect]
     Active Substance: FLUOROURACIL
     Dosage: 2220 MILLIGRAM
     Route: 042
     Dates: start: 20200706
  7. PANITUMUMAB [Suspect]
     Active Substance: PANITUMUMAB
     Dosage: 400 MILLIGRAM
     Route: 042
     Dates: start: 20200817
  8. PANITUMUMAB [Suspect]
     Active Substance: PANITUMUMAB
     Dosage: 365 MILLIGRAM
     Route: 042
     Dates: start: 20201026
  9. PANITUMUMAB [Suspect]
     Active Substance: PANITUMUMAB
     Dosage: 350 MILLIGRAM
     Route: 042
     Dates: start: 20201214
  10. FOLINIC ACID [Suspect]
     Active Substance: LEUCOVORIN
     Indication: COLORECTAL CANCER METASTATIC
     Dosage: 350 MILLIGRAM
     Route: 065
     Dates: start: 20200427
  11. FOLINIC ACID [Suspect]
     Active Substance: LEUCOVORIN
     Dosage: 365 MILLIGRAM
     Route: 065
     Dates: start: 20200706
  12. FOLINIC ACID [Suspect]
     Active Substance: LEUCOVORIN
     Dosage: 680 MILLIGRAM
     Route: 065
     Dates: start: 20201214
  13. FLUOROURACIL. [Suspect]
     Active Substance: FLUOROURACIL
     Dosage: 2125 MILLIGRAM
     Route: 042
     Dates: start: 20200608
  14. FLUOROURACIL. [Suspect]
     Active Substance: FLUOROURACIL
     Dosage: 710 MILLIGRAM
     Route: 040
     Dates: start: 20210317
  15. OXALIPLATIN. [Suspect]
     Active Substance: OXALIPLATIN
     Indication: COLORECTAL CANCER METASTATIC
     Dosage: 150 MILLIGRAM
     Route: 065
     Dates: start: 20200427
  16. FOLINIC ACID [Suspect]
     Active Substance: LEUCOVORIN
     Dosage: 710 MILLIGRAM
     Route: 065
     Dates: start: 20210317
  17. FLUOROURACIL. [Suspect]
     Active Substance: FLUOROURACIL
     Dosage: 4370 MILLIGRAM
     Route: 042
     Dates: start: 20200817
  18. FLUOROURACIL. [Suspect]
     Active Substance: FLUOROURACIL
     Dosage: 700 MILLIGRAM
     Route: 040
     Dates: start: 20201012
  19. FLUOROURACIL. [Suspect]
     Active Substance: FLUOROURACIL
     Dosage: 680 MILLIGRAM
     Route: 040
     Dates: start: 20201214
  20. OXALIPLATIN. [Suspect]
     Active Substance: OXALIPLATIN
     Dosage: 155 MILLIGRAM
     Route: 065
     Dates: start: 20200706
  21. PANITUMUMAB [Suspect]
     Active Substance: PANITUMUMAB
     Dosage: 380 MILLIGRAM
     Route: 042
     Dates: start: 20201012
  22. PANITUMUMAB [Suspect]
     Active Substance: PANITUMUMAB
     Dosage: 375 MILLIGRAM
     Route: 042
     Dates: start: 20210622
  23. FLUOROURACIL. [Suspect]
     Active Substance: FLUOROURACIL
     Dosage: 740 MILLIGRAM
     Route: 040
     Dates: start: 20200803
  24. FLUOROURACIL. [Suspect]
     Active Substance: FLUOROURACIL
     Dosage: 4270 MILLIGRAM
     Route: 042
     Dates: start: 20200928
  25. FLUOROURACIL. [Suspect]
     Active Substance: FLUOROURACIL
     Dosage: 4150 MILLIGRAM
     Route: 042
     Dates: start: 20201026
  26. PANITUMUMAB [Suspect]
     Active Substance: PANITUMUMAB
     Dosage: 365 MILLIGRAM
     Route: 042
     Dates: start: 20201230
  27. PANITUMUMAB [Suspect]
     Active Substance: PANITUMUMAB
     Dosage: 395 MILLIGRAM
     Route: 042
     Dates: start: 20210720
  28. FLUOROURACIL. [Suspect]
     Active Substance: FLUOROURACIL
     Dosage: 730 MILLIGRAM
     Route: 040
     Dates: start: 20200817
  29. FLUOROURACIL. [Suspect]
     Active Substance: FLUOROURACIL
     Dosage: 710 MILLIGRAM
     Route: 040
     Dates: start: 20200928
  30. FLUOROURACIL. [Suspect]
     Active Substance: FLUOROURACIL
     Dosage: 690 MILLIGRAM
     Route: 040
     Dates: start: 20201026
  31. PANITUMUMAB [Suspect]
     Active Substance: PANITUMUMAB
     Indication: COLORECTAL CANCER METASTATIC
     Dosage: 380 MILLIGRAM
     Route: 042
     Dates: start: 20200427
  32. FOLINIC ACID [Suspect]
     Active Substance: LEUCOVORIN
     Dosage: 740 MILLIGRAM
     Route: 065
     Dates: start: 20200803
  33. FOLINIC ACID [Suspect]
     Active Substance: LEUCOVORIN
     Dosage: 690 MILLIGRAM
     Route: 065
     Dates: start: 20201026
  34. FLUOROURACIL. [Suspect]
     Active Substance: FLUOROURACIL
     Indication: COLORECTAL CANCER METASTATIC
     Dosage: 700 MILLIGRAM
     Route: 040
     Dates: start: 20200427
  35. FLUOROURACIL. [Suspect]
     Active Substance: FLUOROURACIL
     Dosage: 2110 MILLIGRAM
     Route: 042
     Dates: start: 20200427
  36. FLUOROURACIL. [Suspect]
     Active Substance: FLUOROURACIL
     Dosage: 735 MILLIGRAM
     Route: 040
     Dates: start: 20200706
  37. FLUOROURACIL. [Suspect]
     Active Substance: FLUOROURACIL
     Dosage: 4045 MILLIGRAM
     Route: 042
     Dates: start: 20201214
  38. PANITUMUMAB [Suspect]
     Active Substance: PANITUMUMAB
     Dosage: 390 MILLIGRAM
     Route: 042
     Dates: start: 20200928
  39. PANITUMUMAB [Suspect]
     Active Substance: PANITUMUMAB
     Dosage: 385 MILLIGRAM
     Route: 042
     Dates: start: 20210317
  40. FOLINIC ACID [Suspect]
     Active Substance: LEUCOVORIN
     Dosage: 730 MILLIGRAM
     Route: 065
     Dates: start: 20200817
  41. FOLINIC ACID [Suspect]
     Active Substance: LEUCOVORIN
     Dosage: 710 MILLIGRAM
     Route: 065
     Dates: start: 20200928
  42. FLUOROURACIL. [Suspect]
     Active Substance: FLUOROURACIL
     Dosage: 4225 MILLIGRAM
     Route: 042
     Dates: start: 20201012
  43. FLUOROURACIL. [Suspect]
     Active Substance: FLUOROURACIL
     Dosage: 4250 MILLIGRAM
     Route: 042
     Dates: start: 20210317

REACTIONS (4)
  - Hypokalaemia [Recovered/Resolved]
  - Dry skin [Not Recovered/Not Resolved]
  - Hypocalcaemia [Recovering/Resolving]
  - Thrombosis [Recovered/Resolved]

NARRATIVE: CASE EVENT DATE: 202010
